FAERS Safety Report 10486481 (Version 1)
Quarter: 2014Q3

REPORT INFORMATION
  Report Type: Spontaneous
  Country: JP (occurrence: None)
  Receive Date: 20140929
  Receipt Date: 20140929
  Transmission Date: 20150326
  Serious: Yes (Other)
  Sender: FDA-Public Use
  Company Number: 2014COR00083

PATIENT
  Age: 64 Year
  Sex: Male

DRUGS (2)
  1. MELOXICAM (MELOXICAM) UNKNOWN [Suspect]
     Active Substance: MELOXICAM
     Indication: OSTEOARTHROPATHY
  2. ASPIRIN (ACETYLSALICYLIC ACID) [Suspect]
     Active Substance: ASPIRIN

REACTIONS (4)
  - Ileal stenosis [None]
  - Gastrointestinal haemorrhage [None]
  - Intestinal diaphragm disease [None]
  - Abdominal pain [None]
